FAERS Safety Report 8320431-7 (Version None)
Quarter: 2012Q2

REPORT INFORMATION
  Report Type: 
  Country: None (occurrence: None)
  Receive Date: 20120426
  Receipt Date: 20120426
  Transmission Date: 20120825
  Serious: Yes (Other)
  Sender: FDA-Public Use
  Company Number: None

PATIENT
  Sex: Female
  Weight: 57.1532 kg

DRUGS (1)
  1. AMOXICILLIN AND CLAVULANATE POTASSIUM [Suspect]
     Indication: SINUSITIS
     Dosage: 875-125 MG. EVERY 12 HRS MOUTH 6 TABLETS TAKEN
     Route: 048

REACTIONS (3)
  - MUSCULAR WEAKNESS [None]
  - MYALGIA [None]
  - FUNGAL INFECTION [None]
